FAERS Safety Report 8339283-4 (Version None)
Quarter: 2012Q2

REPORT INFORMATION
  Report Type: 
  Country: None (occurrence: None)
  Receive Date: 20120502
  Receipt Date: 20120423
  Transmission Date: 20120825
  Serious: Yes (Other)
  Sender: FDA-Public Use
  Company Number: DKLU1078800

PATIENT
  Age: 17 Year
  Sex: Female

DRUGS (4)
  1. LEVETIRACETAM [Concomitant]
  2. SABRIL [Suspect]
     Indication: PARTIAL SEIZURES
     Dosage: 1 G GRAM(S), 1 IN 1 D; AFTER TWO WEEKS OF THERAPY
  3. VALPROATE SODIUM [Concomitant]
  4. PREGABALIN [Concomitant]

REACTIONS (9)
  - CONFUSIONAL STATE [None]
  - DIET REFUSAL [None]
  - HALLUCINATION, VISUAL [None]
  - SPEECH DISORDER [None]
  - ANXIETY [None]
  - ABNORMAL BEHAVIOUR [None]
  - PSYCHOTIC DISORDER [None]
  - PARANOIA [None]
  - ANTICONVULSANT DRUG LEVEL INCREASED [None]
